FAERS Safety Report 7579320-8 (Version None)
Quarter: 2011Q2

REPORT INFORMATION
  Report Type: 
  Country: None (occurrence: None)
  Receive Date: 20110628
  Receipt Date: 20110601
  Transmission Date: 20111010
  Serious: No
  Sender: FDA-Public Use
  Company Number: US-BAYER-2011-047867

PATIENT
  Age: 65 Year
  Sex: Male
  Weight: 127 kg

DRUGS (2)
  1. LIPITOR [Concomitant]
     Dosage: UNK
  2. ALEVE (CAPLET) [Suspect]
     Indication: ANALGESIC THERAPY
     Dosage: 3 DF, ONCE
     Route: 048
     Dates: start: 20010601, end: 20110601

REACTIONS (1)
  - NO ADVERSE EVENT [None]
